FAERS Safety Report 8283086-6 (Version None)
Quarter: 2012Q2

REPORT INFORMATION
  Report Type: 
  Country: None (occurrence: None)
  Receive Date: 20120413
  Receipt Date: 20120406
  Transmission Date: 20120825
  Serious: No
  Sender: FDA-Public Use
  Company Number: US-PFIZER INC-2012087535

PATIENT
  Sex: Female
  Weight: 63.492 kg

DRUGS (3)
  1. PROBIOTICS [Concomitant]
     Dosage: UNK
  2. MULTI-VITAMINS [Concomitant]
     Dosage: UNK
  3. CLINDAMYCIN PHOSPHATE [Suspect]
     Indication: VAGINITIS BACTERIAL
     Dosage: UNK, ONCE AT NIGHT
     Route: 067
     Dates: start: 20120402

REACTIONS (2)
  - VULVOVAGINAL BURNING SENSATION [None]
  - VULVOVAGINAL ERYTHEMA [None]
